FAERS Safety Report 16106020 (Version 2)
Quarter: 2020Q1

REPORT INFORMATION
  Report Type: Spontaneous
  Country: GB (occurrence: GB)
  Receive Date: 20190322
  Receipt Date: 20200214
  Transmission Date: 20200409
  Serious: Yes (Other)
  Sender: FDA-Public Use
  Company Number: GB-PFIZER INC-2019119413

PATIENT
  Age: 77 Year
  Sex: Female
  Weight: 57.4 kg

DRUGS (18)
  1. DOXYCYCLINE MONOHYDRATE [Suspect]
     Active Substance: DOXYCYCLINE
     Indication: LOWER RESPIRATORY TRACT INFECTION
     Dosage: UNK (100 MG TWO INITIALLY, THEN ONE TO BE TAKEN ONCE A DAY)
     Route: 048
     Dates: start: 20190221, end: 20190224
  2. STERI-NEB SALINE [Concomitant]
     Dosage: 2.5 ML, UNK (NEBULISER)
     Dates: start: 20090923
  3. SALBUTAMOL [Concomitant]
     Active Substance: ALBUTEROL
     Dosage: UNK, AS NEEDED (AS REQUIRED NEBULISER)
     Dates: start: 20131001
  4. AVAMYS [Concomitant]
     Active Substance: FLUTICASONE FUROATE
     Dosage: 27.5 MG, UNK (1-2 SPRAYS UP EACH NOSTRIL)
     Dates: start: 20150923
  5. ALENDRONIC ACID [Concomitant]
     Active Substance: ALENDRONIC ACID
     Dosage: 70 MG, UNK
     Dates: start: 20150320
  6. TILDIEM [Concomitant]
     Active Substance: DILTIAZEM HYDROCHLORIDE
     Dosage: 120 MG, 1X/DAY
     Dates: start: 20090623
  7. AMOXICILLIN. [Concomitant]
     Active Substance: AMOXICILLIN
     Dosage: UNK
  8. GLYCERYL TRINITRATE [Concomitant]
     Active Substance: NITROGLYCERIN
     Dosage: 400 UG, UNK
     Dates: start: 20101019
  9. ACETYLSALICYLIC ACID [Concomitant]
     Active Substance: ASPIRIN
     Dosage: 75 MG, UNK
     Dates: start: 20080812
  10. AMITRIPTYLINE HYDROCHLORIDE. [Concomitant]
     Active Substance: AMITRIPTYLINE HYDROCHLORIDE
     Dosage: 50 MG, 1X/DAY (AT NIGHT)
     Dates: start: 20150320
  11. MONOMIL XL [Concomitant]
     Active Substance: ISOSORBIDE MONONITRATE
     Dosage: 60 MG, 1X/DAY (1.5 TABLETS)
     Dates: start: 20060613
  12. COLOMYCIN [COLISTIMETHATE SODIUM;SODIUM CHLORIDE] [Concomitant]
     Dosage: UNK
     Dates: start: 20131001
  13. LANSOPRAZOLE. [Concomitant]
     Active Substance: LANSOPRAZOLE
     Dosage: 15 MG, 1X/DAY (IN MORNING)
     Dates: start: 20050613
  14. PARACETAMOL [Concomitant]
     Active Substance: ACETAMINOPHEN
     Dosage: 500 MG, UNK (1 OR 2 AS NECESSARY)
     Dates: start: 20060613
  15. AZITHROMYCIN ANHYDROUS. [Concomitant]
     Active Substance: AZITHROMYCIN ANHYDROUS
     Dosage: UNK
  16. VENTOLIN [Concomitant]
     Active Substance: ALBUTEROL SULFATE
     Dosage: 100 UG, AS NEEDED (1-2 PUFFS AS NECESSARY)
     Dates: start: 20150707
  17. PRAVASTATIN SODIUM. [Concomitant]
     Active Substance: PRAVASTATIN SODIUM
     Dosage: 40 MG, 1X/DAY (ADVISED TO OMIT WHILST TAKING DOXYCYCLINE)
     Dates: start: 20180301
  18. RANITIDINE HYDROCHLORIDE. [Concomitant]
     Active Substance: RANITIDINE HYDROCHLORIDE
     Dosage: 300 MG, 1X/DAY
     Dates: start: 20180301

REACTIONS (4)
  - Facial paralysis [Unknown]
  - Facial paralysis [Not Recovered/Not Resolved]
  - Oral discomfort [Unknown]
  - Eyelid function disorder [Unknown]

NARRATIVE: CASE EVENT DATE: 20190223
